FAERS Safety Report 4464562-0 (Version None)
Quarter: 2004Q3

REPORT INFORMATION
  Report Type: 
  Country: None (occurrence: None)
  Receive Date: 20040929
  Receipt Date: 20040913
  Transmission Date: 20050211
  Serious: Yes (Death, Life-Threatening, Hospitalization)
  Sender: FDA-Public Use
  Company Number: F01200402799

PATIENT
  Age: 67 Year
  Sex: Female

DRUGS (13)
  1. OXALIPLATIN - SOLUTION- 85 MG/M2 [Suspect]
     Indication: COLORECTAL CANCER
     Dosage: 85 MG/M2 Q2W- INTRAVENOUS NOS
     Route: 042
     Dates: start: 20040811, end: 20040811
  2. FLUOROURACIL [Suspect]
     Dosage: 500 MG/M2 BOLUS ON D, D8 AND D15, Q4W -  INTRAVENOUS BOLUS
     Route: 040
     Dates: start: 20040811, end: 20040811
  3. LEUCOVORIN CALCIUM [Suspect]
     Dosage: 20 MG/M2 ON D1, D8 AND D15, Q4W - INTRAVENOUS BOLUS
     Route: 040
     Dates: start: 20040811, end: 20040811
  4. AVASTIN [Suspect]
     Dosage: 5 MG/K OVER 30-90 MINUTES IV INFUSION ON D1,D15, Q4W - INTRAVENOUS NOS
     Route: 042
     Dates: start: 20040811, end: 20040811
  5. ROSIGLITAZONE MALEATE [Concomitant]
  6. METFORMIN HCL [Concomitant]
  7. WARFARIN SODIUM [Concomitant]
  8. ZOLPIDEM TARTRATE [Concomitant]
  9. CALCIUM [Concomitant]
  10. MULTI-VITAMINS [Concomitant]
  11. POTASSIUM [Concomitant]
  12. HYDROCODONE TARTRATE /PARACETAMOL [Concomitant]
  13. FUROSEMIDE [Concomitant]

REACTIONS (14)
  - ABDOMINAL ADHESIONS [None]
  - ACTIVATED PARTIAL THROMBOPLASTIN TIME PROLONGED [None]
  - ANASTOMOTIC COMPLICATION [None]
  - DECREASED APPETITE [None]
  - ENTERITIS [None]
  - INFREQUENT BOWEL MOVEMENTS [None]
  - INTERNATIONAL NORMALISED RATIO INCREASED [None]
  - INTESTINAL PERFORATION [None]
  - KLEBSIELLA INFECTION [None]
  - LACTOBACILLUS INFECTION [None]
  - PERITONITIS [None]
  - POST PROCEDURAL COMPLICATION [None]
  - SEPSIS [None]
  - URINARY TRACT INFECTION ENTEROCOCCAL [None]
